FAERS Safety Report 25212173 (Version 1)
Quarter: 2025Q2

REPORT INFORMATION
  Report Type: Other
  Country: PR (occurrence: PR)
  Receive Date: 20250418
  Receipt Date: 20250418
  Transmission Date: 20250716
  Serious: Yes (Death, Hospitalization)
  Sender: ANI
  Company Number: PR-ANIPHARMA-022417

PATIENT
  Age: 50 Year
  Sex: Female

DRUGS (3)
  1. AMINOCAPROIC ACID [Suspect]
     Active Substance: AMINOCAPROIC ACID
     Indication: Haemorrhage prophylaxis
  2. CYTARABINE [Concomitant]
     Active Substance: CYTARABINE
     Indication: Acute myeloid leukaemia
  3. METHYLPREDNISOLONE [Concomitant]
     Active Substance: METHYLPREDNISOLONE
     Indication: Tachypnoea

REACTIONS (1)
  - Drug ineffective [Fatal]
